FAERS Safety Report 9149021 (Version 1)
Quarter: 2013Q1

REPORT INFORMATION
  Report Type: Spontaneous
  Country: US (occurrence: None)
  Receive Date: 20130301
  Receipt Date: 20130301
  Transmission Date: 20140127
  Serious: Yes (Death)
  Sender: FDA-Public Use
  Company Number: UTC-029483

PATIENT
  Age: 63 Year
  Sex: Female
  Weight: 52.27 kg

DRUGS (2)
  1. REMODULIN (1 MILLIGRAM/MILLILITERS, INJECTION FOR INFUSION)(TREPROSTINIL SODIUM) [Suspect]
     Indication: COR PULMONALE CHRONIC
     Dosage: (0.01 UG/KG, 1 IN 1 MIN)
     Route: 041
  2. ADCIRCA (TADALAFIL)(UNKNOWN) [Concomitant]

REACTIONS (1)
  - Death [None]
